FAERS Safety Report 12960385 (Version 2)
Quarter: 2016Q4

REPORT INFORMATION
  Report Type: Report from Study
  Country: US (occurrence: US)
  Receive Date: 20161121
  Receipt Date: 20161221
  Transmission Date: 20170207
  Serious: Yes (Hospitalization, Other)
  Sender: FDA-Public Use
  Company Number: US-GILEAD-2016-0241359

PATIENT
  Age: 72 Year
  Sex: Female

DRUGS (3)
  1. BLOOD [Concomitant]
     Active Substance: WHOLE BLOOD
  2. AMBRISENTAN [Suspect]
     Active Substance: AMBRISENTAN
     Indication: PRODUCT USED FOR UNKNOWN INDICATION
     Dosage: 10 MG, QD
     Route: 065
     Dates: start: 20111010
  3. ADCIRCA [Concomitant]
     Active Substance: TADALAFIL

REACTIONS (7)
  - Haemoglobin decreased [Unknown]
  - Dyspnoea [Unknown]
  - Gout [Unknown]
  - Fluid retention [Unknown]
  - Unevaluable event [Unknown]
  - Anaemia [Unknown]
  - Pneumonia [Unknown]
